FAERS Safety Report 14771914 (Version 5)
Quarter: 2018Q3

REPORT INFORMATION
  Report Type: Report from Study
  Country: CA (occurrence: CA)
  Receive Date: 20180417
  Receipt Date: 20180711
  Transmission Date: 20181010
  Serious: Yes (Hospitalization, Other)
  Sender: FDA-Public Use
  Company Number: CA-GILEAD-2018-0333262

PATIENT
  Age: 66 Year
  Sex: Male
  Weight: 79.8 kg

DRUGS (7)
  1. SOFOSBUVIR W/VELPATASVIR/VOXILAPREVIR [Suspect]
     Active Substance: SOFOSBUVIR\VELPATASVIR\VOXILAPREVIR
     Indication: HEPATITIS C
     Dosage: UNK
     Route: 048
     Dates: start: 20180228, end: 20180411
  2. METHADONE [Concomitant]
     Active Substance: METHADONE HYDROCHLORIDE
  3. FLOVENT [Concomitant]
     Active Substance: FLUTICASONE PROPIONATE
  4. SYNTHROID [Concomitant]
     Active Substance: LEVOTHYROXINE SODIUM
  5. PROPRANOLOL [Concomitant]
     Active Substance: PROPRANOLOL HYDROCHLORIDE
  6. ONDANSETRON [Concomitant]
     Active Substance: ONDANSETRON
  7. VENTOLIN [Concomitant]
     Active Substance: ALBUTEROL SULFATE

REACTIONS (5)
  - Haemorrhage [Recovered/Resolved]
  - Hepatocellular carcinoma [Not Recovered/Not Resolved]
  - Dehydration [Unknown]
  - Intra-abdominal haemorrhage [Recovered/Resolved]
  - Product use issue [Recovered/Resolved]

NARRATIVE: CASE EVENT DATE: 20180405
